FAERS Safety Report 21119088 (Version 1)
Quarter: 2022Q3

REPORT INFORMATION
  Report Type: Spontaneous
  Country: US (occurrence: US)
  Receive Date: 20220722
  Receipt Date: 20220722
  Transmission Date: 20221026
  Serious: No
  Sender: FDA-Public Use
  Company Number: US-BRISTOL-MYERS SQUIBB COMPANY-2022-070340

PATIENT
  Age: 74 Year
  Sex: Female

DRUGS (1)
  1. ORENCIA [Suspect]
     Active Substance: ABATACEPT
     Indication: Rheumatoid arthritis
     Dosage: ONCE WEEKLY
     Route: 058
     Dates: start: 202009

REACTIONS (3)
  - Drug ineffective [Unknown]
  - Sinusitis [Unknown]
  - Pain [Unknown]

NARRATIVE: CASE EVENT DATE: 20220401
